FAERS Safety Report 25829536 (Version 2)
Quarter: 2025Q3

REPORT INFORMATION
  Report Type: Other
  Country: US (occurrence: US)
  Receive Date: 20250922
  Receipt Date: 20250922
  Transmission Date: 20251020
  Serious: No
  Sender: TRAVERE THERAPEUTICS
  Company Number: US-TRAVERE-2025TVT01378

PATIENT
  Age: 35 Year
  Sex: Female

DRUGS (1)
  1. FILSPARI [Suspect]
     Active Substance: SPARSENTAN
     Indication: IgA nephropathy
     Dosage: 200MG, 2 TABLETS
     Route: 048
     Dates: start: 202507

REACTIONS (2)
  - Dizziness [None]
  - Nausea [Unknown]

NARRATIVE: CASE EVENT DATE: 20250701
